FAERS Safety Report 9099942 (Version 1)
Quarter: 2013Q1

REPORT INFORMATION
  Report Type: Spontaneous
  Country: GB (occurrence: GB)
  Receive Date: 20130215
  Receipt Date: 20130215
  Transmission Date: 20140127
  Serious: Yes (Death, Other)
  Sender: FDA-Public Use
  Company Number: GB-PFIZER INC-2013060885

PATIENT
  Age: 72 Year
  Sex: Female

DRUGS (1)
  1. CHAMPIX [Suspect]
     Dosage: UNK
     Dates: start: 20070701

REACTIONS (9)
  - Lung neoplasm malignant [Fatal]
  - Metastases to central nervous system [Fatal]
  - Convulsion [Fatal]
  - Transient ischaemic attack [Unknown]
  - Amnesia [Unknown]
  - Malaise [Unknown]
  - Clumsiness [Unknown]
  - Motor dysfunction [Unknown]
  - Hypersomnia [Unknown]
